FAERS Safety Report 7060119-6 (Version None)
Quarter: 2010Q4

REPORT INFORMATION
  Report Type: 
  Country: None (occurrence: None)
  Receive Date: 20101025
  Receipt Date: 20101012
  Transmission Date: 20110411
  Serious: Yes (Hospitalization)
  Sender: FDA-Public Use
  Company Number: PHHY2010MX67332

PATIENT
  Age: 66 Year
  Sex: Female

DRUGS (1)
  1. RASILEZ [Suspect]
     Indication: HYPERTENSION
     Dosage: 300 MG (1 TABLET DAILY)
     Route: 048
     Dates: start: 20100601

REACTIONS (6)
  - BLOOD GLUCOSE FLUCTUATION [None]
  - BLOOD PRESSURE FLUCTUATION [None]
  - CARDIAC DISORDER [None]
  - FLUID RETENTION [None]
  - GASTRITIS [None]
  - RENAL DISORDER [None]
